FAERS Safety Report 8787319 (Version 1)
Quarter: 2012Q4

REPORT INFORMATION
  Report Type: Report from Study
  Country: US (occurrence: US)
  Receive Date: 20120914
  Receipt Date: 20120914
  Transmission Date: 20130627
  Serious: No
  Sender: FDA-Public Use
  Company Number: US-VERTEX PHARMACEUTICAL INC.-AE-2012-010899

PATIENT
  Age: 56 Year
  Sex: Male
  Weight: 113.64 kg

DRUGS (7)
  1. INCIVEK [Suspect]
     Indication: HEPATITIS C
     Route: 048
  2. PEGASSYS [Concomitant]
     Indication: HEPATITIS C
     Route: 058
  3. RIBAVIRIN [Concomitant]
     Indication: HEPATITIS C
     Route: 048
  4. TOPROL XL [Concomitant]
     Route: 048
  5. PROZAC [Concomitant]
     Route: 048
  6. PLAQUENIL [Concomitant]
     Route: 048
  7. CELEBREX [Concomitant]
     Route: 048

REACTIONS (8)
  - Palpitations [Unknown]
  - Influenza like illness [Unknown]
  - Headache [Unknown]
  - Dry mouth [Unknown]
  - Fatigue [Unknown]
  - Nausea [Unknown]
  - Dysgeusia [Unknown]
  - Anorectal discomfort [Unknown]
